FAERS Safety Report 19477415 (Version 3)
Quarter: 2021Q4

REPORT INFORMATION
  Report Type: Spontaneous
  Country: US (occurrence: US)
  Receive Date: 20210630
  Receipt Date: 20211011
  Transmission Date: 20220304
  Serious: No
  Sender: FDA-Public Use
  Company Number: US-PFIZER INC-2021400451

PATIENT
  Age: 57 Year
  Sex: Female

DRUGS (1)
  1. XELJANZ XR [Suspect]
     Active Substance: TOFACITINIB CITRATE
     Indication: Rheumatoid arthritis
     Dosage: 11 MG, DAILY
     Route: 048
     Dates: start: 20210306

REACTIONS (8)
  - Product dose omission in error [Unknown]
  - Memory impairment [Unknown]
  - Limb discomfort [Unknown]
  - Anaemia [Unknown]
  - Diarrhoea [Not Recovered/Not Resolved]
  - Arthralgia [Unknown]
  - COVID-19 [Unknown]
  - Weight decreased [Unknown]
